FAERS Safety Report 4809341-7 (Version None)
Quarter: 2005Q4

REPORT INFORMATION
  Report Type: 
  Country: None (occurrence: None)
  Receive Date: 20051018
  Receipt Date: 20050930
  Transmission Date: 20060501
  Serious: Yes (Life-Threatening, Hospitalization)
  Sender: FDA-Public Use
  Company Number: IG408

PATIENT
  Age: 57 Year
  Sex: Male
  Weight: 80 kg

DRUGS (5)
  1. FLEBOGAMMA [Suspect]
     Indication: PERIPHERAL MOTOR NEUROPATHY
     Dosage: 120 G EVERY 6 WEEKS  IV----FOR YEARS
     Route: 042
  2. ACETYL SALICYLIC ACID (PROPHYLAXIS) [Concomitant]
  3. IBUPROFEN [Concomitant]
  4. BISOPROLOL (HYPERTENSION) [Concomitant]
  5. PANTOPRAZOL (PROPHYLAXIS) [Concomitant]

REACTIONS (3)
  - PERICARDITIS [None]
  - PLEURISY [None]
  - PNEUMONIA [None]
